FAERS Safety Report 4289077-4 (Version None)
Quarter: 2004Q1

REPORT INFORMATION
  Report Type: 
  Country: None (occurrence: None)
  Receive Date: 20040130
  Receipt Date: 20031010
  Transmission Date: 20041129
  Serious: No
  Sender: FDA-Public Use
  Company Number: WAES 0310USA01485

PATIENT

DRUGS (2)
  1. EMEND [Suspect]
     Dosage: PO
     Route: 048
     Dates: start: 20030101
  2. BENADRYL [Concomitant]

REACTIONS (1)
  - PLICATED TONGUE [None]
